FAERS Safety Report 21590939 (Version 2)
Quarter: 2023Q2

REPORT INFORMATION
  Report Type: Spontaneous
  Country: FR (occurrence: FR)
  Receive Date: 20221114
  Receipt Date: 20230608
  Transmission Date: 20230721
  Serious: Yes (Other)
  Sender: FDA-Public Use
  Company Number: None

PATIENT
  Age: 53 Year
  Sex: Female
  Weight: 63 kg

DRUGS (1)
  1. TALTZ [Suspect]
     Active Substance: IXEKIZUMAB
     Indication: Ankylosing spondylitis
     Dosage: 160 MG, SINGLE
     Route: 058
     Dates: start: 20221001, end: 20221001

REACTIONS (5)
  - Paradoxical psoriasis [Recovering/Resolving]
  - Platelet count increased [Recovered/Resolved]
  - Gastrointestinal motility disorder [Unknown]
  - Genital infection [Recovering/Resolving]
  - Injection site erythema [Recovered/Resolved]

NARRATIVE: CASE EVENT DATE: 20221001
